FAERS Safety Report 10056044 (Version 1)
Quarter: 2014Q2

REPORT INFORMATION
  Report Type: Spontaneous
  Country: US (occurrence: US)
  Receive Date: 20140403
  Receipt Date: 20140403
  Transmission Date: 20141212
  Serious: No
  Sender: FDA-Public Use
  Company Number: US-009507513-1403USA011990

PATIENT
  Sex: Female

DRUGS (2)
  1. SINEMET [Suspect]
     Indication: PARKINSON^S DISEASE
     Dosage: 9-22 TABLETS DAILY
     Route: 048
     Dates: start: 200203
  2. SINEMET CR [Suspect]
     Indication: PARKINSON^S DISEASE
     Dosage: 9-22 TABLETS DAILY
     Route: 048
     Dates: start: 200203

REACTIONS (2)
  - Balance disorder [Unknown]
  - Overdose [Unknown]
